FAERS Safety Report 17735340 (Version 1)
Quarter: 2020Q2

REPORT INFORMATION
  Report Type: Spontaneous
  Country: US (occurrence: US)
  Receive Date: 20200501
  Receipt Date: 20200501
  Transmission Date: 20200714
  Serious: Yes (Death, Other)
  Sender: FDA-Public Use
  Company Number: US-SA-2020SA113924

PATIENT
  Age: 61 Year
  Sex: Male

DRUGS (5)
  1. EPTIFIBATIDE. [Suspect]
     Active Substance: EPTIFIBATIDE
     Indication: ANTIPLATELET THERAPY
     Dosage: UNK
     Route: 042
  2. ASPIRIN [ACETYLSALICYLIC ACID] [Concomitant]
     Active Substance: ASPIRIN
     Indication: ANTIPLATELET THERAPY
  3. RT-PA [Concomitant]
     Active Substance: ALTEPLASE
     Dosage: UNK
     Route: 042
  4. CLOPIDOGREL BISULFATE. [Suspect]
     Active Substance: CLOPIDOGREL BISULFATE
     Indication: ANTIPLATELET THERAPY
  5. RT-PA [Concomitant]
     Active Substance: ALTEPLASE
     Route: 013

REACTIONS (2)
  - Cerebral infarction [Fatal]
  - Haemorrhagic transformation stroke [Fatal]
